FAERS Safety Report 19735145 (Version 1)
Quarter: 2021Q3

REPORT INFORMATION
  Report Type: Spontaneous
  Country: FR (occurrence: FR)
  Receive Date: 20210824
  Receipt Date: 20210824
  Transmission Date: 20211014
  Serious: Yes (Other)
  Sender: FDA-Public Use
  Company Number: FR-OCTA-ALB04521FR

PATIENT
  Age: 80 Year
  Sex: Female
  Weight: 50 kg

DRUGS (1)
  1. ALBUNORM 20 % [Suspect]
     Active Substance: ALBUMIN HUMAN
     Indication: STARVATION
     Route: 042
     Dates: start: 20210802, end: 20210802

REACTIONS (1)
  - Oxygen saturation decreased [Recovered/Resolved]

NARRATIVE: CASE EVENT DATE: 20210802
